FAERS Safety Report 4932297-3 (Version None)
Quarter: 2006Q1

REPORT INFORMATION
  Report Type: 
  Country: None (occurrence: None)
  Receive Date: 20060228
  Receipt Date: 20060206
  Transmission Date: 20060701
  Serious: No
  Sender: FDA-Public Use
  Company Number: CA200511002922

PATIENT
  Age: 22 Year
  Sex: Female
  Weight: 61.2 kg

DRUGS (5)
  1. STRATTERA [Suspect]
     Indication: ATTENTION DEFICIT/HYPERACTIVITY DISORDER
     Dosage: SEE IMAGE
     Route: 048
     Dates: start: 20051007, end: 20051010
  2. STRATTERA [Suspect]
     Indication: ATTENTION DEFICIT/HYPERACTIVITY DISORDER
     Dosage: SEE IMAGE
     Route: 048
     Dates: start: 20051011, end: 20051016
  3. STRATTERA [Suspect]
     Indication: ATTENTION DEFICIT/HYPERACTIVITY DISORDER
     Dosage: SEE IMAGE
     Route: 048
     Dates: start: 20051017, end: 20051017
  4. NOVORAPID /DEN/ (INSULIN ASPART) [Concomitant]
  5. DICETEL /BEL/ (PINAVERIUM BROMIDE) [Concomitant]

REACTIONS (15)
  - ABDOMINAL PAIN [None]
  - ALTERED VISUAL DEPTH PERCEPTION [None]
  - BLOOD GLUCOSE INCREASED [None]
  - CONSTIPATION [None]
  - DIPLOPIA [None]
  - DRY MOUTH [None]
  - EDUCATIONAL PROBLEM [None]
  - FEELING HOT [None]
  - MYDRIASIS [None]
  - NAUSEA [None]
  - POLYDIPSIA [None]
  - POLYURIA [None]
  - VISION BLURRED [None]
  - VISUAL DISTURBANCE [None]
  - VOMITING [None]
